FAERS Safety Report 22973177 (Version 4)
Quarter: 2023Q4

REPORT INFORMATION
  Report Type: Report from Study
  Country: US (occurrence: US)
  Receive Date: 20230922
  Receipt Date: 20231103
  Transmission Date: 20240110
  Serious: Yes (Hospitalization, Other)
  Sender: FDA-Public Use
  Company Number: US-TAKEDA-2023TUS091849

PATIENT
  Age: 12 Year
  Sex: Male
  Weight: 37 kg

DRUGS (14)
  1. TEDUGLUTIDE [Suspect]
     Active Substance: TEDUGLUTIDE
     Indication: Short-bowel syndrome
     Dosage: 1.8 MILLIGRAM, QD
     Route: 058
     Dates: start: 20230602, end: 20230701
  2. TEDUGLUTIDE [Suspect]
     Active Substance: TEDUGLUTIDE
     Indication: Short-bowel syndrome
     Dosage: 1.8 MILLIGRAM, QD
     Route: 058
     Dates: start: 20230602, end: 20230701
  3. TEDUGLUTIDE [Suspect]
     Active Substance: TEDUGLUTIDE
     Indication: Short-bowel syndrome
     Dosage: 1.8 MILLIGRAM, QD
     Route: 058
     Dates: start: 20230602, end: 20230701
  4. TEDUGLUTIDE [Suspect]
     Active Substance: TEDUGLUTIDE
     Indication: Short-bowel syndrome
     Dosage: 1.8 MILLIGRAM, QD
     Route: 058
     Dates: start: 20230602, end: 20230701
  5. CHOLECALCIFEROL [Concomitant]
     Active Substance: CHOLECALCIFEROL
     Indication: Vitamin D deficiency
     Dosage: 1250 MICROGRAM
     Route: 048
  6. CHOLECALCIFEROL [Concomitant]
     Active Substance: CHOLECALCIFEROL
     Dosage: 50000 INTERNATIONAL UNIT, 3/WEEK
     Route: 065
  7. LOPERAMIDE [Concomitant]
     Active Substance: LOPERAMIDE
     Indication: Diarrhoea
     Dosage: 2 MILLIGRAM, TID
     Route: 048
     Dates: start: 20230320
  8. MESALAMINE [Concomitant]
     Active Substance: MESALAMINE
     Dosage: 250 MILLIGRAM, QID
     Route: 048
     Dates: start: 20230706
  9. METRONIDAZOLE [Concomitant]
     Active Substance: METRONIDAZOLE
     Indication: Gastrointestinal bacterial overgrowth
     Dosage: UNK UNK, BID
     Route: 065
     Dates: start: 20230330
  10. METRONIDAZOLE [Concomitant]
     Active Substance: METRONIDAZOLE
     Dosage: 200 MILLIGRAM, BID
     Route: 048
  11. OMEPRAZOLE [Concomitant]
     Active Substance: OMEPRAZOLE
     Dosage: 40 MILLIGRAM, QD
     Route: 048
     Dates: start: 20230706
  12. SULFAMETHOXAZOLE AND TRIMETHOPRIM [Concomitant]
     Active Substance: SULFAMETHOXAZOLE\TRIMETHOPRIM
     Dosage: UNK UNK, BID
     Route: 050
     Dates: start: 20230330
  13. SULFAMETHOXAZOLE AND TRIMETHOPRIM [Concomitant]
     Active Substance: SULFAMETHOXAZOLE\TRIMETHOPRIM
     Dosage: 200 MILLIGRAM, BID
     Route: 048
  14. BACTRIM [Suspect]
     Active Substance: SULFAMETHOXAZOLE\TRIMETHOPRIM
     Indication: Gastrointestinal bacterial overgrowth
     Dosage: 200 MILLIGRAM, BID
     Route: 065

REACTIONS (4)
  - Anastomotic ulcer [Not Recovered/Not Resolved]
  - Gastrointestinal haemorrhage [Recovered/Resolved]
  - Haemoglobin decreased [Recovered/Resolved]
  - Haematochezia [Recovered/Resolved]

NARRATIVE: CASE EVENT DATE: 20230625
